FAERS Safety Report 5411494-7 (Version None)
Quarter: 2007Q3

REPORT INFORMATION
  Report Type: 
  Country: None (occurrence: None)
  Receive Date: 20070810
  Receipt Date: 20070731
  Transmission Date: 20080115
  Serious: Yes (Hospitalization)
  Sender: FDA-Public Use
  Company Number: AT-PFIZER INC-2007004734

PATIENT
  Age: 45 Year
  Sex: Male

DRUGS (6)
  1. TRESLEEN [Suspect]
     Route: 048
     Dates: start: 20061030, end: 20061115
  2. IVADAL [Suspect]
     Dosage: DAILY DOSE:20MG
  3. MARCUMAR [Suspect]
     Dosage: TEXT:3-4.5MG
  4. SIMVASTATIN [Concomitant]
     Dosage: DAILY DOSE:20MG
  5. INSULATARD [Concomitant]
  6. MARCUMAR [Concomitant]

REACTIONS (2)
  - INTERNATIONAL NORMALISED RATIO INCREASED [None]
  - PROTHROMBIN TIME SHORTENED [None]
